FAERS Safety Report 19168083 (Version 2)
Quarter: 2021Q2

REPORT INFORMATION
  Report Type: Spontaneous
  Country: JP (occurrence: JP)
  Receive Date: 20210422
  Receipt Date: 20210615
  Transmission Date: 20210717
  Serious: Yes (Other)
  Sender: FDA-Public Use
  Company Number: JP-BAYER-2021-123542

PATIENT
  Age: 50 Year
  Weight: 63 kg

DRUGS (2)
  1. JIVI [Suspect]
     Active Substance: DAMOCTOCOG ALFA PEGOL
     Indication: HAEMOPHILIA
     Dosage: 3000U,ONCE A WEEK
  2. KOVALTRY [Suspect]
     Active Substance: ANTIHEMOPHILIC FACTOR, HUMAN RECOMBINANT
     Indication: HAEMOPHILIA
     Dosage: 1000U,ONCE A WEEK

REACTIONS (2)
  - Inappropriate schedule of product administration [None]
  - Haemorrhage [None]
